FAERS Safety Report 22025340 (Version 1)
Quarter: 2023Q1

REPORT INFORMATION
  Report Type: Spontaneous
  Country: US (occurrence: None)
  Receive Date: 20230223
  Receipt Date: 20230223
  Transmission Date: 20230417
  Serious: No
  Sender: FDA-Public Use
  Company Number: US-ROCHE-3075776

PATIENT
  Age: 16 Year
  Sex: Female

DRUGS (15)
  1. XOLAIR [Suspect]
     Active Substance: OMALIZUMAB
     Indication: Asthma
     Route: 058
     Dates: start: 202105, end: 20211111
  2. XOLAIR [Suspect]
     Active Substance: OMALIZUMAB
  3. XOLAIR [Suspect]
     Active Substance: OMALIZUMAB
  4. ALBUTEROL SULFATE [Concomitant]
     Active Substance: ALBUTEROL SULFATE
     Dosage: INHALE 2 PUFFS INTO LUNGS EVERY 6 HOURS AS NEEDED
  5. BUDESONIDE [Concomitant]
     Active Substance: BUDESONIDE
     Dosage: 180 MCG/ACT, INHALER INHALE 1 PUFF INTO LUNGS TWO TIMES DAILY
  6. BUDESONIDE [Concomitant]
     Active Substance: BUDESONIDE
     Dosage: 0.5MG/2ML, NEBULIZER SOLUTION TAKE 2ML BY NEBULIZATION
  7. EPIPEN [Concomitant]
     Active Substance: EPINEPHRINE
     Dosage: 0.3MG/0.3 ML INJECT ONE DEVIDE AS NEEDED
  8. FLUOCINONIDE [Concomitant]
     Active Substance: FLUOCINONIDE
     Dosage: APPLY TOPICALLY TWO TIMES DAILY
  9. KETOTIFEN [Concomitant]
     Active Substance: KETOTIFEN
     Dosage: 0.025% OPTHALMIC SOLUTION PLACE ONE DROP INTO BOTH EYES
  10. LEVALBUTEROL [Concomitant]
     Active Substance: LEVALBUTEROL
     Dosage: 0.63MG/3 ML NEBULIZER SOLUTION, TAKE 1 AMPOULE BY NEBULIZATION, EVERY FOUR HOURS AS NEEDED
  11. MONTELUKAST SODIUM [Concomitant]
     Active Substance: MONTELUKAST SODIUM
     Dosage: AT NIGHT
     Route: 048
  12. MUPIROCIN [Concomitant]
     Active Substance: MUPIROCIN
     Route: 061
  13. PREDNISOLONE [Concomitant]
     Active Substance: PREDNISOLONE
     Dosage: 15MG/5ML SYRUP 1 TSP, BID FOR 5 DAYS
  14. TRIAMCINOLONE [Concomitant]
     Active Substance: TRIAMCINOLONE
     Route: 061
  15. FLUTICASONE [Concomitant]
     Active Substance: FLUTICASONE
     Dosage: 50 MCG/ACT, 2 SPRAYS DAILY
     Route: 045

REACTIONS (1)
  - Maternal exposure during pregnancy [Unknown]
